FAERS Safety Report 9649595 (Version 1)
Quarter: 2013Q4

REPORT INFORMATION
  Report Type: Spontaneous
  Country: GB (occurrence: None)
  Receive Date: 20131025
  Receipt Date: 20131025
  Transmission Date: 20140711
  Serious: Yes (Life-Threatening)
  Sender: FDA-Public Use
  Company Number: GB-013345

PATIENT
  Age: 24 Month
  Sex: Male
  Weight: 10.6 kg

DRUGS (11)
  1. ZOMACTON [Suspect]
     Indication: FAILURE TO THRIVE
     Route: 058
     Dates: start: 20121002, end: 20130415
  2. CYCLIZINE [Concomitant]
  3. ALFACALCIDOL [Concomitant]
  4. LOPERAMIDE [Concomitant]
  5. OMEPRAZOLE [Concomitant]
  6. SANDOCAL [Concomitant]
  7. PHOSPHATE-SANDOZ [Concomitant]
  8. MIDODRINE [Concomitant]
  9. ERYTHROPOIETIN [Concomitant]
  10. IBUPROFEN [Concomitant]
  11. PIRITON [Concomitant]

REACTIONS (1)
  - Hepatoblastoma [None]
